FAERS Safety Report 9741803 (Version 1)
Quarter: 2013Q4

REPORT INFORMATION
  Report Type: Spontaneous
  Country: JP (occurrence: JP)
  Receive Date: 20131210
  Receipt Date: 20131210
  Transmission Date: 20140711
  Serious: Yes (Other)
  Sender: FDA-Public Use
  Company Number: PHHY2013JP143210

PATIENT
  Sex: 0

DRUGS (2)
  1. NEORAL [Suspect]
     Indication: APLASTIC ANAEMIA
     Dosage: 400 MG, DAILY IN 2 DIVIDED DOSES
     Route: 048
  2. SANDIMMUN [Suspect]
     Indication: APLASTIC ANAEMIA
     Dosage: 250 MG, DAILY IN TWO DIVIDED DOSES

REACTIONS (3)
  - Cardiac failure [Unknown]
  - Infection [Unknown]
  - Oral administration complication [Unknown]
